FAERS Safety Report 9517311 (Version 1)
Quarter: 2013Q3

REPORT INFORMATION
  Report Type: Spontaneous
  Country: US (occurrence: US)
  Receive Date: 20130911
  Receipt Date: 20130911
  Transmission Date: 20140515
  Serious: No
  Sender: FDA-Public Use
  Company Number: US-ASTRAZENECA-2013SE61014

PATIENT
  Sex: Female

DRUGS (3)
  1. SYMBICORT [Suspect]
     Indication: CHRONIC OBSTRUCTIVE PULMONARY DISEASE
     Route: 055
     Dates: end: 201307
  2. NEXIUM [Suspect]
     Route: 048
     Dates: end: 201307
  3. MEDICATION FOR BLOOD PRESSURE [Concomitant]

REACTIONS (2)
  - Dyspnoea [Unknown]
  - Intentional drug misuse [Unknown]
